FAERS Safety Report 6759847-9 (Version None)
Quarter: 2010Q2

REPORT INFORMATION
  Report Type: 
  Country: None (occurrence: None)
  Receive Date: 20100608
  Receipt Date: 20100525
  Transmission Date: 20101027
  Serious: No
  Sender: FDA-Public Use
  Company Number: PHEH2009US02587

PATIENT
  Sex: Female

DRUGS (11)
  1. RECLAST [Suspect]
     Indication: OSTEOPOROSIS
     Dosage: 5 MG, UNK
     Dates: start: 20090223, end: 20090223
  2. CALCIUM WITH VITAMIN D [Concomitant]
     Dosage: 600 MG/200 UNITS, TWICE DAILY
  3. NEXIUM [Concomitant]
  4. SYNTHROID [Concomitant]
  5. TENORMIN [Concomitant]
  6. CELEBREX [Concomitant]
  7. PREMARIN [Concomitant]
  8. CRESTOR [Concomitant]
  9. CALCIUM CARBONATE [Concomitant]
  10. FISH OIL [Concomitant]
  11. COENZYME Q10 [Concomitant]

REACTIONS (7)
  - ARTHRALGIA [None]
  - BACK PAIN [None]
  - BLOOD CALCIUM DECREASED [None]
  - BURNING SENSATION [None]
  - MYALGIA [None]
  - PAIN [None]
  - PAIN IN EXTREMITY [None]
